FAERS Safety Report 15865970 (Version 20)
Quarter: 2022Q1

REPORT INFORMATION
  Report Type: Other
  Country: US (occurrence: None)
  Receive Date: 20190125
  Receipt Date: 20220330
  Transmission Date: 20220423
  Serious: Yes (Hospitalization, Other)
  Sender: FDA-Public Use
  Company Number: US-ROCHE-2251306

PATIENT
  Sex: Female
  Weight: 40.860 kg

DRUGS (11)
  1. OCREVUS [Suspect]
     Active Substance: OCRELIZUMAB
     Indication: Primary progressive multiple sclerosis
     Dosage: UNKNOWN
     Route: 042
     Dates: start: 20170927, end: 20180331
  2. OCREVUS [Suspect]
     Active Substance: OCRELIZUMAB
     Indication: Relapsing multiple sclerosis
     Route: 042
     Dates: start: 20171011
  3. OCREVUS [Suspect]
     Active Substance: OCRELIZUMAB
     Indication: Secondary progressive multiple sclerosis
     Route: 042
     Dates: start: 20180316
  4. OCREVUS [Suspect]
     Active Substance: OCRELIZUMAB
     Route: 042
     Dates: start: 20190215
  5. OCREVUS [Suspect]
     Active Substance: OCRELIZUMAB
     Route: 042
     Dates: start: 20190917
  6. OCREVUS [Suspect]
     Active Substance: OCRELIZUMAB
     Dosage: ADDITIONAL DATE OF TREATMENT WAS 07/JAN/2021
     Route: 042
     Dates: start: 20171127, end: 2019
  7. MAVENCLAD [Suspect]
     Active Substance: CLADRIBINE
     Indication: Multiple sclerosis
     Route: 065
  8. MAVENCLAD [Suspect]
     Active Substance: CLADRIBINE
     Route: 065
     Dates: start: 2019
  9. SIPONIMOD [Suspect]
     Active Substance: SIPONIMOD
     Indication: Multiple sclerosis
     Route: 065
  10. METHOTREXATE [Concomitant]
     Active Substance: METHOTREXATE
  11. LEFLUNOMIDE [Concomitant]
     Active Substance: LEFLUNOMIDE

REACTIONS (37)
  - Cerebral disorder [Not Recovered/Not Resolved]
  - Urinary tract infection [Recovered/Resolved]
  - Multiple sclerosis [Not Recovered/Not Resolved]
  - Upper limb fracture [Unknown]
  - Rib fracture [Unknown]
  - Wrist fracture [Unknown]
  - Lower limb fracture [Unknown]
  - Fall [Unknown]
  - Hallucination [Not Recovered/Not Resolved]
  - Optic neuritis [Unknown]
  - Seizure [Unknown]
  - Knee operation [Not Recovered/Not Resolved]
  - Pyrexia [Recovered/Resolved]
  - Gait disturbance [Not Recovered/Not Resolved]
  - Pain in extremity [Not Recovered/Not Resolved]
  - Mass [Not Recovered/Not Resolved]
  - Sensory loss [Unknown]
  - Impaired driving ability [Not Recovered/Not Resolved]
  - Illness [Unknown]
  - Asthenia [Not Recovered/Not Resolved]
  - Back pain [Not Recovered/Not Resolved]
  - Urinary incontinence [Unknown]
  - Arthropathy [Not Recovered/Not Resolved]
  - Dementia [Not Recovered/Not Resolved]
  - Memory impairment [Not Recovered/Not Resolved]
  - Off label use [Unknown]
  - Malaise [Unknown]
  - Balance disorder [Not Recovered/Not Resolved]
  - Memory impairment [Not Recovered/Not Resolved]
  - Gait inability [Unknown]
  - Contusion [Unknown]
  - Arthralgia [Unknown]
  - Insomnia [Unknown]
  - Gait disturbance [Unknown]
  - Seizure [Unknown]
  - Fatigue [Unknown]
  - Functional gastrointestinal disorder [Unknown]

NARRATIVE: CASE EVENT DATE: 20180101
